FAERS Safety Report 7675214-8 (Version None)
Quarter: 2011Q3

REPORT INFORMATION
  Report Type: 
  Country: None (occurrence: None)
  Receive Date: 20110810
  Receipt Date: 20110810
  Transmission Date: 20111222
  Serious: Yes (Death, Life-Threatening, Hospitalization, Disabling, Other)
  Sender: FDA-Public Use
  Company Number: None

PATIENT
  Age: 62 Year
  Sex: Male
  Weight: 86.182 kg

DRUGS (1)
  1. PRADAXA [Suspect]
     Indication: ATRIAL FIBRILLATION
     Dosage: 75 MG
     Route: 048
     Dates: start: 20110208, end: 20110309

REACTIONS (10)
  - HAEMORRHAGE [None]
  - UNRESPONSIVE TO STIMULI [None]
  - INFECTION [None]
  - HEPATIC FAILURE [None]
  - ASTHENIA [None]
  - DEPRESSED LEVEL OF CONSCIOUSNESS [None]
  - PROCEDURAL COMPLICATION [None]
  - RENAL FAILURE [None]
  - INTESTINAL ISCHAEMIA [None]
  - SEPSIS [None]
